FAERS Safety Report 10064808 (Version 1)
Quarter: 2014Q2

REPORT INFORMATION
  Report Type: Spontaneous
  Country: US (occurrence: None)
  Receive Date: 20140404
  Receipt Date: 20140404
  Transmission Date: 20141212
  Serious: Yes (Hospitalization)
  Sender: FDA-Public Use
  Company Number: UTC-046534

PATIENT
  Age: 67 Year
  Sex: Female

DRUGS (11)
  1. REMODULIN [Suspect]
     Indication: PULMONARY ARTERIAL HYPERTENSION
     Route: 058
     Dates: start: 20130405
  2. LASIX (FUROSEMIDE) (UNKNOWN) [Concomitant]
  3. ALBUTEROL (SALBUTAMOL SULFATE) (UNKNOWN) [Concomitant]
  4. POTASSIUM (POTASSIUM) (UNKNOWN) [Concomitant]
  5. VALIUM (DIAZEPAM) (UNKNOWN) [Concomitant]
  6. HUMALOG (INSULIN) (UNKNOWN) [Concomitant]
  7. ALTACE (RAMIPRIL) (UNKNOWN) [Concomitant]
  8. CELEXA (CITALOPRAM HYDROBROMIDE) (UNKNOWN) [Concomitant]
  9. HYDROCHLOROTHIAZIDE/TRIAMTERENE (DYAZIDE) (UNKNOWN) [Concomitant]
  10. MAGNESIUM (MAGNESIUM) (UNKNOWN) [Concomitant]
  11. LETAIRIS (AMBRISENTAN) (UNKNOWN) [Concomitant]

REACTIONS (1)
  - Fluid overload [None]
